FAERS Safety Report 7630460-4 (Version None)
Quarter: 2011Q3

REPORT INFORMATION
  Report Type: 
  Country: None (occurrence: None)
  Receive Date: 20110722
  Receipt Date: 20110718
  Transmission Date: 20111222
  Serious: Yes (Hospitalization, Disabling)
  Sender: FDA-Public Use
  Company Number: US-AMGEN-USACT2011016759

PATIENT
  Age: 44 Year
  Sex: Female
  Weight: 68.481 kg

DRUGS (12)
  1. KAPIDEX [Concomitant]
     Dosage: 60 MG, QD
     Route: 048
     Dates: start: 20091013
  2. DOXYCYCLINE HCL [Concomitant]
     Dosage: UNK UNK, BID
     Dates: start: 20110301
  3. GEMCITABINE [Concomitant]
     Dosage: 1936 MG, UNK
     Route: 042
     Dates: start: 20100928
  4. CALCIUM +VIT D [Concomitant]
     Dosage: UNK
     Dates: start: 20101123
  5. MAGNESIUM GLUCONATE [Concomitant]
     Dosage: 30 MG, BID
     Route: 048
     Dates: start: 20110318
  6. PERCOCET [Concomitant]
     Dosage: UNK UNK, PRN
     Dates: start: 20110210
  7. CARBOPLATIN [Concomitant]
     Dosage: 167 MG, UNK
     Route: 042
     Dates: start: 20100928
  8. ALBUTEROL SULFATE AUTOHALER [Concomitant]
     Dosage: UNK UNK, PRN
     Dates: start: 20110118
  9. MACROBID [Concomitant]
     Dosage: 100 MG, BID
     Route: 048
     Dates: start: 20110324
  10. PANITUMUMAB [Suspect]
     Indication: BREAST CANCER
     Dosage: 409 MG, UNK
     Route: 042
     Dates: start: 20100928
  11. FLEXERIL [Concomitant]
     Dosage: 10 MG, QD
     Dates: start: 20101228
  12. NADOLOL [Concomitant]
     Dosage: 40 MG, QD
     Dates: start: 20101013

REACTIONS (2)
  - CHRONIC OBSTRUCTIVE PULMONARY DISEASE [None]
  - PNEUMONIA [None]
